FAERS Safety Report 4915557-1 (Version None)
Quarter: 2006Q1

REPORT INFORMATION
  Report Type: 
  Country: None (occurrence: None)
  Receive Date: 20060217
  Receipt Date: 20051005
  Transmission Date: 20060701
  Serious: Yes (Hospitalization)
  Sender: FDA-Public Use
  Company Number: US-MERCK-0510USA03850

PATIENT
  Age: 74 Year
  Sex: Female
  Weight: 50 kg

DRUGS (8)
  1. VIOXX [Suspect]
     Indication: OSTEOARTHRITIS
     Route: 048
     Dates: start: 20001201, end: 20031016
  2. VIOXX [Suspect]
     Route: 048
     Dates: start: 20001201, end: 20031016
  3. K-DUR 10 [Concomitant]
     Indication: HYPOKALAEMIA
     Route: 065
  4. SINGULAIR [Concomitant]
     Route: 065
  5. PREVACID [Concomitant]
     Route: 065
  6. BUMEX [Concomitant]
     Route: 065
     Dates: start: 20000101, end: 20010101
  7. PREDNISONE [Concomitant]
     Route: 065
  8. TYLENOL [Concomitant]
     Route: 065

REACTIONS (23)
  - ACUTE MYOCARDIAL INFARCTION [None]
  - ASTHMA [None]
  - BLOOD CHOLESTEROL INCREASED [None]
  - BRADYCARDIA [None]
  - CARDIAC FAILURE CONGESTIVE [None]
  - CARDIOMEGALY [None]
  - CHRONIC OBSTRUCTIVE PULMONARY DISEASE [None]
  - DIABETES MELLITUS NON-INSULIN-DEPENDENT [None]
  - GASTROOESOPHAGEAL REFLUX DISEASE [None]
  - HEART RATE IRREGULAR [None]
  - HYPERTENSION [None]
  - HYPOKALAEMIA [None]
  - INAPPROPRIATE DEVICE SIGNAL DETECTION [None]
  - LUNG CARCINOMA CELL TYPE UNSPECIFIED STAGE I [None]
  - LUNG DISORDER [None]
  - LUNG NEOPLASM [None]
  - OBESITY [None]
  - OEDEMA PERIPHERAL [None]
  - PULMONARY VASCULAR DISORDER [None]
  - RECTAL HAEMORRHAGE [None]
  - RESPIRATORY FAILURE [None]
  - SEASONAL ALLERGY [None]
  - VENTRICULAR TACHYCARDIA [None]
